FAERS Safety Report 25178231 (Version 1)
Quarter: 2025Q2

REPORT INFORMATION
  Report Type: Spontaneous
  Country: US (occurrence: US)
  Receive Date: 20250409
  Receipt Date: 20250409
  Transmission Date: 20250717
  Serious: Yes (Life-Threatening, Hospitalization)
  Sender: MYLAN
  Company Number: US-MYLANLABS-2025M1030087

PATIENT
  Age: 56 Year
  Sex: Male

DRUGS (10)
  1. PHENYTOIN [Interacting]
     Active Substance: PHENYTOIN
     Indication: Seizure
  2. CARBIDOPA\LEVODOPA [Interacting]
     Active Substance: CARBIDOPA\LEVODOPA
     Indication: Product used for unknown indication
  3. PROPOFOL [Interacting]
     Active Substance: PROPOFOL
     Indication: Sedation
  4. MIDAZOLAM [Interacting]
     Active Substance: MIDAZOLAM
     Indication: Sedation
  5. FOSPHENYTOIN [Interacting]
     Active Substance: FOSPHENYTOIN
     Indication: Seizure
  6. TRAZODONE [Interacting]
     Active Substance: TRAZODONE HYDROCHLORIDE
     Indication: Product used for unknown indication
  7. VORTIOXETINE [Interacting]
     Active Substance: VORTIOXETINE
     Indication: Product used for unknown indication
  8. LURASIDONE [Interacting]
     Active Substance: LURASIDONE
     Indication: Product used for unknown indication
  9. LAMOTRIGINE [Interacting]
     Active Substance: LAMOTRIGINE
     Indication: Product used for unknown indication
  10. BACLOFEN [Interacting]
     Active Substance: BACLOFEN
     Indication: Product used for unknown indication

REACTIONS (3)
  - Serotonin syndrome [Recovered/Resolved]
  - Neuroleptic malignant syndrome [Recovered/Resolved]
  - Drug interaction [Recovered/Resolved]
